FAERS Safety Report 10602729 (Version 1)
Quarter: 2014Q4

REPORT INFORMATION
  Report Type: Spontaneous
  Country: US (occurrence: US)
  Receive Date: 20141124
  Receipt Date: 20141124
  Transmission Date: 20150529
  Serious: No
  Sender: FDA-Public Use
  Company Number: US-NOVEN-14US010295

PATIENT
  Age: 44 Year
  Sex: Female

DRUGS (4)
  1. DEXILANT [Concomitant]
     Active Substance: DEXLANSOPRAZOLE
     Dosage: UNK
  2. SYMAX DUOTAB [Concomitant]
     Active Substance: HYOSCYAMINE SULFATE
     Dosage: UNK
  3. MINIVELLE [Suspect]
     Active Substance: ESTRADIOL
     Dosage: 0.1MG/DAY, TWICE WEEKLY
     Route: 062
  4. MINIVELLE [Suspect]
     Active Substance: ESTRADIOL
     Indication: HYSTERECTOMY
     Dosage: 0.1MG/DAY, TWICE WEEKLY
     Route: 062
     Dates: start: 20131004

REACTIONS (3)
  - Product quality issue [Not Recovered/Not Resolved]
  - Incorrect drug administration duration [Not Recovered/Not Resolved]
  - No adverse event [None]

NARRATIVE: CASE EVENT DATE: 20140905
